FAERS Safety Report 12647421 (Version 1)
Quarter: 2016Q3

REPORT INFORMATION
  Report Type: Report from Study
  Country: US (occurrence: US)
  Receive Date: 20160812
  Receipt Date: 20160812
  Transmission Date: 20161109
  Serious: Yes (Other)
  Sender: FDA-Public Use
  Company Number: US-ASTELLAS-2010001173

PATIENT
  Age: 52 Year
  Sex: Male

DRUGS (4)
  1. ERLOTINIB [Suspect]
     Active Substance: ERLOTINIB
     Indication: NEOPLASM
     Route: 048
     Dates: start: 20091203, end: 20091229
  2. VISMODEGIB [Suspect]
     Active Substance: VISMODEGIB
     Dosage: UNK, UNKNOWN FREQ.
     Route: 048
     Dates: start: 20091205, end: 20091230
  3. ERLOTINIB [Suspect]
     Active Substance: ERLOTINIB
     Dosage: UNK, UNKNOWN FREQ.
     Route: 048
     Dates: start: 20091205, end: 20091230
  4. VISMODEGIB [Suspect]
     Active Substance: VISMODEGIB
     Indication: NEOPLASM
     Route: 048
     Dates: start: 20091203, end: 20091229

REACTIONS (12)
  - Decreased appetite [Unknown]
  - Blood alkaline phosphatase increased [Recovering/Resolving]
  - Pruritus [Unknown]
  - Nausea [Unknown]
  - Hiccups [Unknown]
  - Hyponatraemia [Unknown]
  - Dyspnoea [Unknown]
  - Abdominal pain [Unknown]
  - Stevens-Johnson syndrome [Not Recovered/Not Resolved]
  - Vomiting [Unknown]
  - Dehydration [Unknown]
  - Aspartate aminotransferase increased [Unknown]

NARRATIVE: CASE EVENT DATE: 20091209
